FAERS Safety Report 5268876-6 (Version None)
Quarter: 2007Q1

REPORT INFORMATION
  Report Type: 
  Country: None (occurrence: None)
  Receive Date: 20070319
  Receipt Date: 20070306
  Transmission Date: 20070707
  Serious: Yes (Other)
  Sender: FDA-Public Use
  Company Number: PHNU2006DE03452

PATIENT
  Age: 63 Year
  Sex: Female
  Weight: 57 kg

DRUGS (7)
  1. ZOLEDRONIC ACID [Suspect]
     Indication: METASTASES TO BONE
     Dosage: 4 MG, TIW
     Route: 042
     Dates: start: 20050411, end: 20060401
  2. ZOMETA [Suspect]
     Indication: METASTASES TO BONE
     Dosage: 4 MG, UNK
     Route: 042
     Dates: end: 20060601
  3. ASTROMICIN [Concomitant]
  4. HYDROCORTISON [Concomitant]
     Indication: ADRENALECTOMY
     Dosage: 37.5 UNK, QD
     Route: 065
     Dates: start: 20041101
  5. ACCUPRO [Concomitant]
     Indication: HYPERTENSION
     Dosage: 10 MG, BID
     Route: 048
  6. ASTONIN-H [Concomitant]
     Indication: ADRENALECTOMY
     Dosage: 1 DF, BID
     Route: 048
     Dates: start: 20041101
  7. LEVOTHYROXINE SODIUM [Concomitant]
     Indication: THYROIDECTOMY
     Dosage: 50 UG, QD
     Route: 048
     Dates: start: 20050601

REACTIONS (5)
  - BIOPSY SITE UNSPECIFIED ABNORMAL [None]
  - IMPAIRED HEALING [None]
  - OSTEONECROSIS [None]
  - SURGERY [None]
  - TOOTH EXTRACTION [None]
